FAERS Safety Report 25522828 (Version 2)
Quarter: 2025Q3

REPORT INFORMATION
  Report Type: Other
  Country: GB (occurrence: GB)
  Receive Date: 20250707
  Receipt Date: 20250707
  Transmission Date: 20251020
  Serious: Yes (Other)
  Sender: GLENMARK
  Company Number: GB-GLENMARK PHARMACEUTICALS-2025GMK101440

PATIENT
  Age: 22 Year
  Sex: Female

DRUGS (1)
  1. ATOMOXETINE [Suspect]
     Active Substance: ATOMOXETINE
     Indication: Attention deficit hyperactivity disorder
     Route: 065
     Dates: start: 20250622, end: 20250623

REACTIONS (10)
  - Throat tightness [Recovering/Resolving]
  - Wheezing [Recovered/Resolved]
  - Dysphagia [Recovered/Resolved]
  - Hypertension [Recovering/Resolving]
  - Rash [Recovered/Resolved]
  - Heart rate increased [Recovering/Resolving]
  - Rash maculo-papular [Unknown]
  - Dysphonia [Not Recovered/Not Resolved]
  - Oropharyngeal pain [Not Recovered/Not Resolved]
  - Rash pruritic [Unknown]

NARRATIVE: CASE EVENT DATE: 20250622
